FAERS Safety Report 5731945-8 (Version None)
Quarter: 2008Q2

REPORT INFORMATION
  Report Type: 
  Country: None (occurrence: None)
  Receive Date: 20080508
  Receipt Date: 20080430
  Transmission Date: 20081010
  Serious: Yes (Life-Threatening, Hospitalization)
  Sender: FDA-Public Use
  Company Number: GB-ASTRAZENECA-2006GB01481

PATIENT
  Age: 47 Year
  Sex: Male

DRUGS (11)
  1. ATENOLOL [Suspect]
     Route: 048
  2. OMEPRAZOLE [Interacting]
     Route: 048
  3. AMISULPRIDE [Interacting]
     Route: 048
  4. DOXAZOSIN MESYLATE [Interacting]
     Route: 048
  5. FENTANYL [Interacting]
     Route: 042
  6. HALOPERIDOL [Interacting]
     Route: 065
  7. PANTOPRAZOLE SODIUM [Interacting]
     Route: 065
  8. PROCYCLIDINE HYDROCHLORIDE 2MG TAB [Interacting]
     Route: 048
  9. RIFAMPICIN [Interacting]
     Route: 042
  10. ZOPICLONE [Interacting]
     Route: 065
  11. ZYVOX [Interacting]
     Indication: STAPHYLOCOCCAL INFECTION
     Route: 042
     Dates: start: 20041017, end: 20041020

REACTIONS (2)
  - DRUG INTERACTION [None]
  - HYPERTENSION [None]
